FAERS Safety Report 7270065-0 (Version None)
Quarter: 2011Q1

REPORT INFORMATION
  Report Type: 
  Country: None (occurrence: None)
  Receive Date: 20110202
  Receipt Date: 20110119
  Transmission Date: 20110831
  Serious: Yes (Hospitalization, Other)
  Sender: FDA-Public Use
  Company Number: CA-CELGENEUS-028-21880-11012730

PATIENT
  Sex: Male
  Weight: 80.4 kg

DRUGS (11)
  1. PREDNISONE [Suspect]
     Indication: MULTIPLE MYELOMA
     Route: 065
     Dates: start: 20080710
  2. PREGABALIN [Concomitant]
     Route: 048
     Dates: start: 20110113
  3. CYCLOPHOSPHAMIDE [Suspect]
     Indication: MULTIPLE MYELOMA
     Route: 065
     Dates: start: 20080710
  4. NABILONE [Concomitant]
  5. HYDROMORPHONE HCL [Concomitant]
     Indication: PAIN MANAGEMENT
     Route: 048
     Dates: start: 20110117
  6. REVLIMID [Suspect]
     Indication: MULTIPLE MYELOMA
     Route: 048
     Dates: start: 20080710, end: 20110112
  7. NABILONE [Concomitant]
     Indication: PAIN MANAGEMENT
     Route: 048
     Dates: start: 20110113
  8. PANTOPRAZOLE SODIUM [Concomitant]
     Route: 048
     Dates: start: 20110113
  9. DOCUSATE SODIUM [Concomitant]
     Indication: CONSTIPATION
     Route: 048
     Dates: start: 20110114
  10. HYDROMORPH CONTIN CR [Concomitant]
     Indication: PAIN MANAGEMENT
     Route: 048
     Dates: start: 20110113
  11. SENECOT [Concomitant]
     Indication: CONSTIPATION
     Route: 048
     Dates: start: 20110114

REACTIONS (2)
  - HYPERGLYCAEMIA [None]
  - PANCREATIC MASS [None]
